FAERS Safety Report 5330638-9 (Version None)
Quarter: 2007Q2

REPORT INFORMATION
  Report Type: 
  Country: None (occurrence: None)
  Receive Date: 20070517
  Receipt Date: 20070509
  Transmission Date: 20071010
  Serious: Yes (Death, Hospitalization, Other)
  Sender: FDA-Public Use
  Company Number: 2005-09-0221

PATIENT
  Age: 54 Year
  Sex: Male
  Weight: 53 kg

DRUGS (16)
  1. REBETOL [Suspect]
     Indication: HEPATITIS C
     Dosage: 800 MG; QD; PO
     Route: 048
     Dates: start: 20040605, end: 20040706
  2. INTRON A [Suspect]
     Indication: HEPATITIS C
     Dosage: SEE IMAGE
     Route: 030
     Dates: start: 20040605, end: 20040706
  3. INTRON A [Suspect]
     Indication: HEPATITIS C
     Dosage: SEE IMAGE
     Route: 030
     Dates: start: 20040906, end: 20040906
  4. PROGRAF [Suspect]
     Indication: IMMUNOSUPPRESSION
     Dosage: SEE IMAGE
     Route: 042
     Dates: start: 20040101, end: 20040101
  5. PROGRAF [Suspect]
     Indication: IMMUNOSUPPRESSION
     Dosage: SEE IMAGE
     Route: 042
     Dates: start: 20040701, end: 20040707
  6. PROGRAF [Suspect]
     Indication: IMMUNOSUPPRESSION
     Dosage: SEE IMAGE
     Route: 042
     Dates: start: 20040101, end: 20040710
  7. PROGRAF [Suspect]
     Indication: IMMUNOSUPPRESSION
     Dosage: SEE IMAGE
     Route: 042
     Dates: start: 20040520
  8. GANCICLOVIR [Suspect]
     Indication: CYTOMEGALOVIRUS ANTIGEN POSITIVE
     Dosage: 400 MG; IV
     Route: 042
     Dates: start: 20040701, end: 20040707
  9. MEDROL [Concomitant]
  10. SOLU-MEDROL [Concomitant]
  11. TAKEPRON [Concomitant]
  12. URSO 250 [Concomitant]
  13. BUFFERIN [Concomitant]
  14. LASIX [Concomitant]
  15. FOSCAVIR [Concomitant]
  16. NEORAL [Concomitant]

REACTIONS (11)
  - ANAEMIA [None]
  - CYTOMEGALOVIRUS TEST POSITIVE [None]
  - DISEASE RECURRENCE [None]
  - HAEMATURIA [None]
  - HAEMOLYSIS [None]
  - HEPATIC FAILURE [None]
  - HEPATITIS C [None]
  - NO THERAPEUTIC RESPONSE [None]
  - OPERATIVE HAEMORRHAGE [None]
  - POST PROCEDURAL COMPLICATION [None]
  - THROMBOTIC MICROANGIOPATHY [None]
